FAERS Safety Report 7859182-1 (Version None)
Quarter: 2011Q3

REPORT INFORMATION
  Report Type: 
  Country: None (occurrence: None)
  Receive Date: 20110803
  Receipt Date: 20110722
  Transmission Date: 20111222
  Serious: Yes (Disabling)
  Sender: FDA-Public Use
  Company Number: LIT-008-11-IT

PATIENT
  Age: 27 Year
  Sex: Female

DRUGS (2)
  1. NON-OCTAPHARMA PRODUCT (HUMAN NORMAL IMMUNOGLOBULIN FOR INTRAVENOUS AD [Suspect]
     Indication: SYSTEMIC LUPUS ERYTHEMATOSUS
     Route: 042
  2. METHYLPREDNISOLONE [Concomitant]

REACTIONS (2)
  - CEREBRAL HAEMORRHAGE [None]
  - VASCULITIS CEREBRAL [None]
